FAERS Safety Report 19237035 (Version 4)
Quarter: 2022Q4

REPORT INFORMATION
  Report Type: Report from Study
  Country: US (occurrence: US)
  Receive Date: 20210510
  Receipt Date: 20221010
  Transmission Date: 20230113
  Serious: Yes (Other)
  Sender: FDA-Public Use
  Company Number: NVSC2021US095840

PATIENT
  Sex: Female

DRUGS (1)
  1. KESIMPTA [Suspect]
     Active Substance: OFATUMUMAB
     Indication: Relapsing multiple sclerosis
     Dosage: 20 MG/KG, QMO
     Route: 058
     Dates: start: 20201105

REACTIONS (3)
  - Multiple sclerosis [Unknown]
  - Memory impairment [Unknown]
  - Inappropriate schedule of product administration [Unknown]
